FAERS Safety Report 7593905-4 (Version None)
Quarter: 2011Q3

REPORT INFORMATION
  Report Type: 
  Country: None (occurrence: None)
  Receive Date: 20110706
  Receipt Date: 20110629
  Transmission Date: 20111222
  Serious: Yes (Hospitalization)
  Sender: FDA-Public Use
  Company Number: PHHO2011CA09955

PATIENT
  Sex: Male
  Weight: 68 kg

DRUGS (12)
  1. RADIOTHERAPY [Suspect]
  2. LORAZEPAM [Concomitant]
     Indication: ANXIETY
  3. PROCHLORPERAZINE TAB [Concomitant]
     Indication: NAUSEA
  4. CARVEDILOL [Concomitant]
     Indication: CARDIAC FAILURE CONGESTIVE
  5. COUMADIN [Concomitant]
     Indication: ANTICOAGULANT THERAPY
  6. LISINOPRIL [Concomitant]
     Indication: CARDIAC FAILURE CONGESTIVE
  7. ASPIRIN [Concomitant]
     Indication: MYOCARDIAL INFARCTION
  8. CHEMOTHERAPEUTICS [Suspect]
  9. CRESTOR [Concomitant]
     Indication: HYPERCHOLESTEROLAEMIA
  10. GEMCITABINE [Suspect]
     Indication: METASTATIC RENAL CELL CARCINOMA
     Dosage: UNK
     Dates: start: 20110321
  11. AFINITOR [Suspect]
     Indication: BLADDER CANCER
     Dosage: 5 MG, DAILY
     Route: 048
     Dates: start: 20110221, end: 20110411
  12. FENOFIBRATE [Concomitant]
     Indication: HYPERCHOLESTEROLAEMIA

REACTIONS (6)
  - PANCYTOPENIA [None]
  - GASTROINTESTINAL HAEMORRHAGE [None]
  - HYPOTENSION [None]
  - GASTROENTERITIS RADIATION [None]
  - FEBRILE NEUTROPENIA [None]
  - LEUKOPENIA [None]
